FAERS Safety Report 23488281 (Version 1)
Quarter: 2024Q1

REPORT INFORMATION
  Report Type: Spontaneous
  Country: US (occurrence: US)
  Receive Date: 20240206
  Receipt Date: 20240206
  Transmission Date: 20240410
  Serious: No
  Sender: FDA-Public Use
  Company Number: US-SA-SAC20240130000247

PATIENT
  Age: 5 Year
  Sex: Female

DRUGS (1)
  1. DUPIXENT [Suspect]
     Active Substance: DUPILUMAB
     Indication: Eczema
     Dosage: 300 MG: Q4W
     Route: 058
     Dates: start: 20230821

REACTIONS (4)
  - Swelling face [Unknown]
  - Pruritus [Unknown]
  - Eye pruritus [Unknown]
  - Eczema [Unknown]

NARRATIVE: CASE EVENT DATE: 20230101
